FAERS Safety Report 18559006 (Version 1)
Quarter: 2020Q4

REPORT INFORMATION
  Report Type: Spontaneous
  Country: US (occurrence: US)
  Receive Date: 20201126
  Receipt Date: 20201126
  Transmission Date: 20210114
  Serious: Yes (Disabling, Other)
  Sender: FDA-Public Use
  Company Number: None

PATIENT
  Age: 75 Year
  Sex: Male
  Weight: 58.5 kg

DRUGS (4)
  1. VITAMIN D3 [Concomitant]
     Active Substance: CHOLECALCIFEROL
  2. LEVOTHYROXINE. [Concomitant]
     Active Substance: LEVOTHYROXINE
  3. B-12 BY MONTHLY INJECTION [Concomitant]
  4. LORAZEPAM. [Suspect]
     Active Substance: LORAZEPAM
     Indication: ANXIETY
     Dosage: ?          QUANTITY:1 TABLET(S);?
     Route: 048

REACTIONS (7)
  - Dyskinesia [None]
  - Head discomfort [None]
  - Crying [None]
  - Quality of life decreased [None]
  - Gait disturbance [None]
  - Amnesia [None]
  - Withdrawal syndrome [None]

NARRATIVE: CASE EVENT DATE: 20130216
